FAERS Safety Report 5513255-7 (Version None)
Quarter: 2007Q4

REPORT INFORMATION
  Report Type: 
  Country: None (occurrence: None)
  Receive Date: 20071112
  Receipt Date: 20071029
  Transmission Date: 20080405
  Serious: Yes (Hospitalization)
  Sender: FDA-Public Use
  Company Number: TR-ELI_LILLY_AND_COMPANY-TR200711000027

PATIENT
  Sex: Female
  Weight: 68 kg

DRUGS (3)
  1. HUMULIN R [Suspect]
     Dosage: 20 IU, EACH MORNING
     Route: 058
     Dates: start: 20070913
  2. HUMULIN R [Suspect]
     Dosage: 22 IU, EACH EVENING
     Route: 058
     Dates: start: 20070913
  3. LANTUS [Concomitant]
     Dosage: 32 IU, EACH EVENING
     Route: 058
     Dates: start: 20070913

REACTIONS (2)
  - EATING DISORDER [None]
  - WEIGHT INCREASED [None]
